FAERS Safety Report 6337501-5 (Version None)
Quarter: 2009Q3

REPORT INFORMATION
  Report Type: 
  Country: None (occurrence: None)
  Receive Date: 20090902
  Receipt Date: 20090820
  Transmission Date: 20100115
  Serious: Yes (Other)
  Sender: FDA-Public Use
  Company Number: US-MYLANLABS-2009S1013766

PATIENT
  Age: 43 Year
  Sex: Female

DRUGS (3)
  1. METHIMAZOLE [Suspect]
     Indication: HYPERTHYROIDISM
     Route: 048
     Dates: start: 20050101, end: 20090722
  2. MEDROXYPROGESTERONE [Concomitant]
     Dosage: 150 MCG/ML
  3. ALPRAZOLAM [Concomitant]

REACTIONS (1)
  - ANAPHYLACTIC REACTION [None]
